FAERS Safety Report 18182903 (Version 11)
Quarter: 2021Q1

REPORT INFORMATION
  Report Type: Spontaneous
  Country: US (occurrence: US)
  Receive Date: 20200821
  Receipt Date: 20210210
  Transmission Date: 20210419
  Serious: Yes (Hospitalization, Other)
  Sender: FDA-Public Use
  Company Number: US-PFIZER INC-2020322925

PATIENT
  Age: 27 Year
  Sex: Female
  Weight: 108.86 kg

DRUGS (5)
  1. PHENELZINE SULFATE. [Suspect]
     Active Substance: PHENELZINE SULFATE
     Indication: DEPRESSION
     Dosage: 15 MG, 3X/DAY
     Route: 048
     Dates: start: 201808
  2. PHENELZINE SULFATE. [Suspect]
     Active Substance: PHENELZINE SULFATE
     Indication: PANIC DISORDER
  3. PHENELZINE SULFATE. [Suspect]
     Active Substance: PHENELZINE SULFATE
     Indication: POST-TRAUMATIC STRESS DISORDER
  4. PHENELZINE SULFATE. [Suspect]
     Active Substance: PHENELZINE SULFATE
     Indication: ANXIETY DISORDER
  5. PHENELZINE SULFATE. [Suspect]
     Active Substance: PHENELZINE SULFATE
     Indication: MAJOR DEPRESSION
     Dosage: 15 MG, 2X/DAY
     Route: 048
     Dates: start: 2018

REACTIONS (24)
  - Intentional self-injury [Unknown]
  - Depression [Unknown]
  - Product taste abnormal [Unknown]
  - Skin laceration [Unknown]
  - Paranoia [Unknown]
  - Thinking abnormal [Unknown]
  - Nausea [Unknown]
  - Decreased appetite [Unknown]
  - Mood altered [Unknown]
  - Feeling abnormal [Unknown]
  - Stress [Unknown]
  - Weight fluctuation [Unknown]
  - Product coating issue [Unknown]
  - Dehydration [Unknown]
  - Suicidal ideation [Unknown]
  - Disorganised speech [Unknown]
  - Memory impairment [Unknown]
  - Crying [Unknown]
  - Insomnia [Unknown]
  - Product odour abnormal [Unknown]
  - Poor quality product administered [Unknown]
  - Psychotic disorder [Recovering/Resolving]
  - Self-injurious ideation [Unknown]
  - Incoherent [Unknown]
